FAERS Safety Report 23084327 (Version 2)
Quarter: 2023Q4

REPORT INFORMATION
  Report Type: Report from Study
  Country: IT (occurrence: IT)
  Receive Date: 20231019
  Receipt Date: 20231020
  Transmission Date: 20240110
  Serious: Yes (Other)
  Sender: FDA-Public Use
  Company Number: IT-PFM-2023-05765

PATIENT
  Sex: Male
  Weight: 99 kg

DRUGS (4)
  1. ENCORAFENIB [Suspect]
     Active Substance: ENCORAFENIB
     Indication: Malignant melanoma
     Dosage: 450 MG, QD (1/DAY)
     Route: 048
     Dates: start: 20230526
  2. ENCORAFENIB [Suspect]
     Active Substance: ENCORAFENIB
     Indication: BRAF V600E mutation positive
  3. BINIMETINIB [Suspect]
     Active Substance: BINIMETINIB
     Indication: Malignant melanoma
     Dosage: 45 MG, QD (1/DAY)
     Route: 048
     Dates: start: 20230526
  4. BINIMETINIB [Suspect]
     Active Substance: BINIMETINIB
     Indication: BRAF V600E mutation positive

REACTIONS (4)
  - Second primary malignancy [Not Recovered/Not Resolved]
  - Malignant melanoma [Not Recovered/Not Resolved]
  - Second primary malignancy [Not Recovered/Not Resolved]
  - Malignant melanoma [Not Recovered/Not Resolved]

NARRATIVE: CASE EVENT DATE: 20230915
